FAERS Safety Report 4735886-4 (Version None)
Quarter: 2005Q3

REPORT INFORMATION
  Report Type: 
  Country: None (occurrence: None)
  Receive Date: 20050804
  Receipt Date: 20050804
  Transmission Date: 20060218
  Serious: Yes (Hospitalization)
  Sender: FDA-Public Use
  Company Number: None

PATIENT
  Sex: Male

DRUGS (1)
  1. HABITROL [Suspect]
     Indication: SMOKING CESSATION THERAPY
     Dosage: 1 DAY CUTANEOUS
     Route: 003
     Dates: start: 20050720, end: 20050721

REACTIONS (4)
  - DRUG TOXICITY [None]
  - HEART RATE INCREASED [None]
  - NAUSEA [None]
  - TACHYARRHYTHMIA [None]
